FAERS Safety Report 22626460 (Version 1)
Quarter: 2023Q2

REPORT INFORMATION
  Report Type: Spontaneous
  Country: JP (occurrence: JP)
  Receive Date: 20230621
  Receipt Date: 20230621
  Transmission Date: 20230722
  Serious: Yes (Hospitalization)
  Sender: FDA-Public Use
  Company Number: JP-Eisai-202303173_LEN-EC_P_1

PATIENT
  Age: 50 Year
  Sex: Female

DRUGS (9)
  1. LENVIMA [Suspect]
     Active Substance: LENVATINIB
     Indication: Endometrial cancer recurrent
     Route: 048
     Dates: start: 20220223, end: 20220225
  2. LENVIMA [Suspect]
     Active Substance: LENVATINIB
     Route: 048
     Dates: start: 20220226, end: 202203
  3. LENVIMA [Suspect]
     Active Substance: LENVATINIB
     Route: 048
     Dates: start: 202203, end: 202204
  4. LENVIMA [Suspect]
     Active Substance: LENVATINIB
     Route: 048
     Dates: start: 202204, end: 202205
  5. LENVIMA [Suspect]
     Active Substance: LENVATINIB
     Route: 048
     Dates: start: 202205, end: 202212
  6. LENVIMA [Suspect]
     Active Substance: LENVATINIB
     Route: 048
  7. LENVIMA [Suspect]
     Active Substance: LENVATINIB
     Route: 048
     Dates: end: 202303
  8. LENVIMA [Suspect]
     Active Substance: LENVATINIB
     Route: 048
     Dates: start: 2023
  9. KEYTRUDA [Suspect]
     Active Substance: PEMBROLIZUMAB
     Indication: Endometrial cancer recurrent
     Route: 048
     Dates: start: 202302

REACTIONS (1)
  - Adrenal insufficiency [Recovering/Resolving]

NARRATIVE: CASE EVENT DATE: 20230323
